FAERS Safety Report 10923161 (Version 12)
Quarter: 2017Q1

REPORT INFORMATION
  Report Type: Report from Study
  Country: DE (occurrence: DE)
  Receive Date: 20150317
  Receipt Date: 20170113
  Transmission Date: 20170428
  Serious: Yes (Death, Hospitalization)
  Sender: FDA-Public Use
  Company Number: PHHO2015DE002629

PATIENT
  Age: 68 Year
  Sex: Male
  Weight: 69.3 kg

DRUGS (2)
  1. LDK378 [Suspect]
     Active Substance: CERITINIB
     Indication: NON-SMALL CELL LUNG CANCER
     Dosage: 750 MG, QD
     Route: 048
     Dates: start: 20150209, end: 20150302
  2. LDK378 [Suspect]
     Active Substance: CERITINIB
     Dosage: 750 MG, QD
     Route: 048
     Dates: start: 20150314, end: 20150330

REACTIONS (7)
  - Dysphagia [Recovered/Resolved]
  - Nausea [Recovered/Resolved]
  - General physical health deterioration [Fatal]
  - Vomiting [Recovered/Resolved]
  - Nausea [Recovered/Resolved]
  - Disease progression [Fatal]
  - General physical health deterioration [Recovered/Resolved]

NARRATIVE: CASE EVENT DATE: 20150216
